APPROVED DRUG PRODUCT: DESVENLAFAXINE
Active Ingredient: DESVENLAFAXINE
Strength: 50MG
Dosage Form/Route: TABLET, EXTENDED RELEASE;ORAL
Application: N204150 | Product #001
Applicant: ALEMBIC PHARMACEUTICALS LTD
Approved: Mar 4, 2013 | RLD: Yes | RS: No | Type: RX